FAERS Safety Report 12577830 (Version 1)
Quarter: 2016Q3

REPORT INFORMATION
  Report Type: Spontaneous
  Country: JP (occurrence: JP)
  Receive Date: 20160721
  Receipt Date: 20160721
  Transmission Date: 20161109
  Serious: Yes (Hospitalization, Other)
  Sender: FDA-Public Use
  Company Number: JP-ASTRAZENECA-2014SE74043

PATIENT
  Age: 22653 Day
  Sex: Female
  Weight: 52 kg

DRUGS (9)
  1. KENALOG [Suspect]
     Active Substance: TRIAMCINOLONE ACETONIDE
     Indication: STOMATITIS
     Dosage: OPTIMAL DOSE, AS REQUIRED
     Route: 061
     Dates: start: 20140127, end: 20140916
  2. HIRUDOID [Suspect]
     Active Substance: GLYCOSAMINOGLYCANS
     Indication: DERMATITIS
     Dosage: OPTIMAL DOSE, AS REQUIRED
     Route: 061
     Dates: start: 20140127, end: 20140916
  3. CALONAL [Suspect]
     Active Substance: ACETAMINOPHEN
     Indication: PYREXIA
     Dosage: 200.0MG AS REQUIRED
     Route: 048
     Dates: start: 20140612, end: 20140916
  4. KINDAVATE [Suspect]
     Active Substance: CLOBETASONE BUTYRATE
     Indication: DERMATITIS
     Dosage: OPTIMAL DOSE, AS REQUIRED
     Route: 061
     Dates: start: 20140127, end: 20140916
  5. EXCELASE [Suspect]
     Active Substance: PANCRELIPASE
     Dosage: DOSE UNKNOWN
     Route: 065
     Dates: start: 201408, end: 20140904
  6. TONTAL [Suspect]
     Active Substance: DOMPERIDONE
     Dosage: DOSE UNKNOWN
     Route: 065
     Dates: start: 201408, end: 20140904
  7. LENDORMIN [Suspect]
     Active Substance: BROTIZOLAM
     Indication: INSOMNIA
     Dosage: 0.25MG AS REQUIRED
     Route: 048
     Dates: start: 20140124, end: 20140916
  8. IRESSA [Suspect]
     Active Substance: GEFITINIB
     Indication: LUNG ADENOCARCINOMA
     Route: 048
     Dates: start: 20140123, end: 20140916
  9. TAKEPRON [Suspect]
     Active Substance: LANSOPRAZOLE
     Indication: GASTRITIS
     Route: 048
     Dates: start: 20140320, end: 20140916

REACTIONS (4)
  - Hepatitis fulminant [Not Recovered/Not Resolved]
  - Pancreatitis [Recovered/Resolved]
  - Malignant ascites [Unknown]
  - Hepatic function abnormal [Not Recovered/Not Resolved]

NARRATIVE: CASE EVENT DATE: 20140807
